FAERS Safety Report 6721567-4 (Version None)
Quarter: 2010Q2

REPORT INFORMATION
  Report Type: 
  Country: None (occurrence: None)
  Receive Date: 20100510
  Receipt Date: 20100423
  Transmission Date: 20101027
  Serious: Yes (Hospitalization)
  Sender: FDA-Public Use
  Company Number: CTI_01183_2010

PATIENT
  Sex: Male
  Weight: 84 kg

DRUGS (3)
  1. MEIACT (MEIACT (CEFDITOREN PIVOXIL)) (NOT SPECIFIED) [Suspect]
     Indication: SPONDYLITIS
     Dosage: (100 MG ORAL)
     Route: 048
     Dates: start: 20100411, end: 20100412
  2. GABAPENTIN [Concomitant]
  3. CETRAZOLE [Concomitant]

REACTIONS (2)
  - BLISTER [None]
  - URTICARIA [None]
